FAERS Safety Report 10044346 (Version 3)
Quarter: 2014Q2

REPORT INFORMATION
  Report Type: Spontaneous
  Country: EG (occurrence: EG)
  Receive Date: 20140328
  Receipt Date: 20140514
  Transmission Date: 20141212
  Serious: Yes (Other)
  Sender: FDA-Public Use
  Company Number: EG-PFIZER INC-2014085986

PATIENT
  Age: 80 Year
  Sex: Female

DRUGS (5)
  1. LYRICA [Suspect]
     Indication: DIABETIC NEUROPATHY
     Dosage: 75 MG, 1X/DAY AT NIGHT
     Route: 048
     Dates: start: 201401, end: 201401
  2. INSULIN [Concomitant]
     Dosage: 20 UNITS, 3X/DAY
  3. LIPITOR [Concomitant]
     Dosage: 20 MG, ONCE DAILY AFTER DINNER
  4. NORVASC [Concomitant]
     Dosage: 5 MG, 1X/DAY
  5. TRIVASTAL [Concomitant]
     Dosage: 50 MG, ONCE DAILY AFTER BREAKFAST

REACTIONS (3)
  - Coma [Recovered/Resolved]
  - Paralysis [Recovered/Resolved]
  - Somnolence [Recovered/Resolved]
